FAERS Safety Report 7591994-4 (Version None)
Quarter: 2011Q2

REPORT INFORMATION
  Report Type: 
  Country: None (occurrence: None)
  Receive Date: 20110606
  Receipt Date: 20100925
  Transmission Date: 20111010
  Serious: Yes (Other)
  Sender: FDA-Public Use
  Company Number: US-SEPTODONT-201000186

PATIENT
  Age: 30 Year
  Sex: Female
  Weight: 90.7 kg

DRUGS (2)
  1. (LIDOCAINE HYDROCHLORIDE, EPINEPHRINE BITARTRATE) [Concomitant]
  2. SEPTOCAINE [Suspect]
     Indication: LOCAL ANAESTHESIA
     Dosage: 68 MG 1X; TOTAL DENTAL
     Route: 004
     Dates: start: 20090820, end: 20090820

REACTIONS (2)
  - INJECTION SITE NECROSIS [None]
  - INJECTION SITE PAIN [None]
